FAERS Safety Report 25214028 (Version 1)
Quarter: 2025Q2

REPORT INFORMATION
  Report Type: Spontaneous
  Country: US (occurrence: None)
  Receive Date: 20250417
  Receipt Date: 20250417
  Transmission Date: 20250716
  Serious: No
  Sender: FDA-CTU
  Company Number: None

PATIENT
  Age: 77 Year
  Sex: Male
  Weight: 86.18 kg

DRUGS (12)
  1. OZEMPIC [Suspect]
     Active Substance: SEMAGLUTIDE
     Indication: Diabetes mellitus
     Dosage: FREQUENCY : WEEKLY;?
     Route: 042
     Dates: start: 20250328
  2. ATORVASTATIN [Concomitant]
     Active Substance: ATORVASTATIN
  3. FINASTERIDE [Concomitant]
     Active Substance: FINASTERIDE
  4. JARDIANCE [Concomitant]
     Active Substance: EMPAGLIFLOZIN
  5. GLIPIZIDE 10MG ER [Concomitant]
  6. METOPROLOL ER 100MG [Concomitant]
  7. PROCARDIA XL 60MG [Concomitant]
  8. CENTRUM ADULT VITAMINS [Concomitant]
  9. LACTOBACILLUS ACIDOPHILUS [Concomitant]
     Active Substance: LACTOBACILLUS ACIDOPHILUS
  10. CALCIUM MAGNESIUM ZINE WITH D3 tablets [Concomitant]
  11. glucosamine chondroitin capsules [Concomitant]
  12. ARTHRITIS PAIN - Acetaminophen extended release tabs [Concomitant]

REACTIONS (5)
  - Headache [None]
  - Nausea [None]
  - Vomiting [None]
  - Decreased appetite [None]
  - Therapy change [None]

NARRATIVE: CASE EVENT DATE: 20250402
